FAERS Safety Report 12231390 (Version 1)
Quarter: 2016Q2

REPORT INFORMATION
  Report Type: Report from Study
  Country: BR (occurrence: BR)
  Receive Date: 20160401
  Receipt Date: 20160401
  Transmission Date: 20160815
  Serious: Yes (Other)
  Sender: FDA-Public Use
  Company Number: BR-BAYER-2016-060979

PATIENT
  Sex: Male

DRUGS (2)
  1. BETAFERON [Suspect]
     Active Substance: INTERFERON BETA-1B
     Indication: MULTIPLE SCLEROSIS
     Dosage: 1.2 ML, QOD
     Route: 058
     Dates: start: 2010, end: 2015
  2. OMEPRAZOL [Concomitant]
     Active Substance: OMEPRAZOLE
     Indication: GASTROOESOPHAGEAL REFLUX DISEASE
     Dosage: 1 DF, BID
     Route: 048

REACTIONS (9)
  - Insomnia [None]
  - Immunodeficiency [Recovered/Resolved]
  - Mass [Recovered/Resolved]
  - Lower extremity mass [Recovered/Resolved]
  - Back pain [None]
  - Headache [None]
  - Conjunctivitis [Recovered/Resolved]
  - Asthenia [Recovered/Resolved]
  - Product use issue [None]

NARRATIVE: CASE EVENT DATE: 2010
